FAERS Safety Report 9186160 (Version 1)
Quarter: 2013Q1

REPORT INFORMATION
  Report Type: Spontaneous
  Country: US (occurrence: US)
  Receive Date: 20130325
  Receipt Date: 20130325
  Transmission Date: 20140127
  Serious: Yes (Hospitalization)
  Sender: FDA-Public Use
  Company Number: US-PFIZER INC-2013095887

PATIENT
  Sex: Male
  Weight: 95 kg

DRUGS (2)
  1. EMBEDA [Suspect]
     Indication: BACK PAIN
     Dosage: UNK, AS NEEDED
  2. LEVEMIR [Concomitant]
     Indication: DIABETES MELLITUS
     Dosage: 10 MG, AS NEEDED

REACTIONS (10)
  - Angina pectoris [Unknown]
  - Drug intolerance [Unknown]
  - Drug hypersensitivity [Unknown]
  - Generalised oedema [Recovered/Resolved]
  - Thrombosis [Unknown]
  - Gait disturbance [Unknown]
  - Malaise [Unknown]
  - Pain [Unknown]
  - Stress [Unknown]
  - Asthenia [Unknown]
